FAERS Safety Report 25973772 (Version 1)
Quarter: 2025Q4

REPORT INFORMATION
  Report Type: Spontaneous
  Country: US (occurrence: US)
  Receive Date: 20251029
  Receipt Date: 20251029
  Transmission Date: 20260118
  Serious: Yes (Other)
  Sender: PHARMOBEDIENT CONSULTING, LLC
  Company Number: US-Pharmobedient-000379

PATIENT
  Age: 7 Decade
  Sex: Female

DRUGS (2)
  1. CLONAZEPAM [Suspect]
     Active Substance: CLONAZEPAM
     Indication: Anxiety
     Dosage: SOMETIMES, AN ADDITIONAL 1 MG AT NIGHT
  2. OXYCODONE [Concomitant]
     Active Substance: OXYCODONE
     Indication: Procedural pain

REACTIONS (15)
  - Drug withdrawal syndrome [Recovered/Resolved]
  - Anxiety [Recovered/Resolved]
  - Insomnia [Recovered/Resolved]
  - Hallucination, auditory [Recovered/Resolved]
  - Decreased appetite [Recovered/Resolved]
  - Hallucination, olfactory [Recovered/Resolved]
  - Asthenia [Recovered/Resolved]
  - Tremor [Recovered/Resolved]
  - Hypokalaemia [Recovering/Resolving]
  - Hypophagia [Recovered/Resolved]
  - Phantosmia [Recovered/Resolved]
  - Photosensitivity reaction [Recovered/Resolved]
  - Tachycardia [Recovering/Resolving]
  - Dehydration [Recovered/Resolved]
  - Fear of death [Recovering/Resolving]
